FAERS Safety Report 18259827 (Version 2)
Quarter: 2020Q4

REPORT INFORMATION
  Report Type: Spontaneous
  Country: ES (occurrence: ES)
  Receive Date: 20200912
  Receipt Date: 20201009
  Transmission Date: 20210113
  Serious: Yes (Hospitalization, Other)
  Sender: FDA-Public Use
  Company Number: ES-AMGEN-ESPSP2020144833

PATIENT
  Age: 72 Year
  Sex: Female

DRUGS (2)
  1. PROLIA [Suspect]
     Active Substance: DENOSUMAB
     Indication: OSTEOPOROSIS
     Dosage: UNK UNK, Q12MO
     Route: 065
     Dates: start: 2014
  2. PROLIA [Suspect]
     Active Substance: DENOSUMAB
     Dosage: UNK UNK, Q6MO
     Route: 065

REACTIONS (10)
  - Paralysis [Recovered/Resolved]
  - Tooth abscess [Unknown]
  - Furuncle [Recovered/Resolved]
  - Weight decreased [Unknown]
  - Off label use [Unknown]
  - Acne [Recovered/Resolved]
  - Groin pain [Unknown]
  - Arthralgia [Unknown]
  - Pyrexia [Unknown]
  - Urticaria [Unknown]

NARRATIVE: CASE EVENT DATE: 2014
